FAERS Safety Report 6997333-1 (Version None)
Quarter: 2010Q3

REPORT INFORMATION
  Report Type: 
  Country: None (occurrence: None)
  Receive Date: 20100918
  Receipt Date: 20091002
  Transmission Date: 20110219
  Serious: No
  Sender: FDA-Public Use
  Company Number: US-WYE-H11387109

PATIENT
  Sex: Female
  Weight: 78.09 kg

DRUGS (1)
  1. PRISTIQ [Suspect]
     Indication: DEPRESSION
     Route: 048
     Dates: start: 20090929

REACTIONS (4)
  - CHEST DISCOMFORT [None]
  - LIP SWELLING [None]
  - RASH [None]
  - SWOLLEN TONGUE [None]
